FAERS Safety Report 19114137 (Version 1)
Quarter: 2021Q2

REPORT INFORMATION
  Report Type: Spontaneous
  Country: US (occurrence: US)
  Receive Date: 20210409
  Receipt Date: 20210409
  Transmission Date: 20210717
  Serious: Yes (Death)
  Sender: FDA-Public Use
  Company Number: None

PATIENT
  Age: 73 Year
  Sex: Female

DRUGS (7)
  1. VERZENIO [Suspect]
     Active Substance: ABEMACICLIB
  2. MEMANTINE HCL [Concomitant]
     Active Substance: MEMANTINE
  3. DEXAMETHASONE. [Concomitant]
     Active Substance: DEXAMETHASONE
  4. NYSTATIN. [Concomitant]
     Active Substance: NYSTATIN
  5. LETROZOLE 2.5 MG TABLET [Suspect]
     Active Substance: LETROZOLE
  6. FAMOTIDINE. [Concomitant]
     Active Substance: FAMOTIDINE
  7. AMOXICILLIN. [Concomitant]
     Active Substance: AMOXICILLIN

REACTIONS (1)
  - Death [None]

NARRATIVE: CASE EVENT DATE: 20210405
